FAERS Safety Report 24113402 (Version 2)
Quarter: 2025Q2

REPORT INFORMATION
  Report Type: Spontaneous
  Country: US (occurrence: US)
  Receive Date: 20240719
  Receipt Date: 20250403
  Transmission Date: 20250717
  Serious: No
  Sender: ABBVIE
  Company Number: US-ABBVIE-5840787

PATIENT
  Age: 23 Year
  Sex: Female

DRUGS (1)
  1. LILETTA [Suspect]
     Active Substance: LEVONORGESTREL
     Indication: Product used for unknown indication
     Route: 015
     Dates: start: 20240608, end: 20240708

REACTIONS (2)
  - Dyspareunia [Unknown]
  - Device expulsion [Unknown]

NARRATIVE: CASE EVENT DATE: 20240608
